FAERS Safety Report 6101455-7 (Version None)
Quarter: 2009Q1

REPORT INFORMATION
  Report Type: 
  Country: None (occurrence: None)
  Receive Date: 20090304
  Receipt Date: 20010607
  Transmission Date: 20090719
  Serious: No
  Sender: FDA-Public Use
  Company Number: US-ABBOTT-08P-163-0457559-00

PATIENT
  Sex: Female

DRUGS (3)
  1. VALPROATE SODIUM [Suspect]
     Indication: DRUG USE FOR UNKNOWN INDICATION
  2. CLONAZEPAM [Interacting]
     Indication: DRUG USE FOR UNKNOWN INDICATION
  3. TRAZODONE HCL [Interacting]
     Indication: DRUG USE FOR UNKNOWN INDICATION

REACTIONS (2)
  - DRUG INTERACTION [None]
  - WEIGHT INCREASED [None]
